FAERS Safety Report 18875806 (Version 1)
Quarter: 2021Q1

REPORT INFORMATION
  Report Type: Report from Study
  Country: US (occurrence: US)
  Receive Date: 20210210
  Receipt Date: 20210210
  Transmission Date: 20210420
  Serious: Yes (Hospitalization)
  Sender: FDA-Public Use
  Company Number: US-JNJFOC-20210147193

PATIENT
  Age: 74 Year
  Sex: Female
  Weight: 97.3 kg

DRUGS (1)
  1. EPOPROSTENOL SODIUM. [Suspect]
     Active Substance: EPOPROSTENOL SODIUM
     Indication: PULMONARY ARTERIAL HYPERTENSION
     Dosage: VELETRI 1.5 MG VIAL INTRAVENOUS CONTINUOUS
     Route: 042

REACTIONS (6)
  - Complication associated with device [Unknown]
  - Malaise [Unknown]
  - Flushing [Unknown]
  - Feeling abnormal [Unknown]
  - COVID-19 [Unknown]
  - Headache [Unknown]

NARRATIVE: CASE EVENT DATE: 20210127
